FAERS Safety Report 18012344 (Version 1)
Quarter: 2020Q3

REPORT INFORMATION
  Report Type: Spontaneous
  Country: CA (occurrence: CA)
  Receive Date: 20200713
  Receipt Date: 20200713
  Transmission Date: 20201103
  Serious: Yes (Life-Threatening, Hospitalization, Disabling)
  Sender: FDA-Public Use
  Company Number: CA-TEVA-2020-CA-1798247

PATIENT
  Age: 68 Year
  Sex: Female
  Weight: 94 kg

DRUGS (18)
  1. DIGOXIN. [Concomitant]
     Active Substance: DIGOXIN
  2. FUROSEMIDE. [Concomitant]
     Active Substance: FUROSEMIDE
  3. ATORVASTATIN [Concomitant]
     Active Substance: ATORVASTATIN
  4. DEXAMETHASONE. [Concomitant]
     Active Substance: DEXAMETHASONE
  5. INSULIN [Concomitant]
     Active Substance: INSULIN NOS
  6. PANTOPRAZOLE [Concomitant]
     Active Substance: PANTOPRAZOLE
  7. PREDNISONE. [Concomitant]
     Active Substance: PREDNISONE
  8. RIVAROXABAN (BAY59?7939) VS. ASA [Concomitant]
     Active Substance: RIVAROXABAN
  9. TRAJENTA [Concomitant]
     Active Substance: LINAGLIPTIN
  10. VITAMIN B12 [Concomitant]
     Active Substance: CYANOCOBALAMIN
  11. RANITIDINE. [Concomitant]
     Active Substance: RANITIDINE
  12. METOPROLOL. [Concomitant]
     Active Substance: METOPROLOL
  13. PROPAFENONE. [Concomitant]
     Active Substance: PROPAFENONE
  14. COSENTYX [Concomitant]
     Active Substance: SECUKINUMAB
  15. DIPHENHYDRAMINE. [Concomitant]
     Active Substance: DIPHENHYDRAMINE
  16. METFORMIN [Concomitant]
     Active Substance: METFORMIN HYDROCHLORIDE
  17. PACLITAXEL FOR INJECTION [Suspect]
     Active Substance: PACLITAXEL
     Indication: ENDOMETRIAL CANCER
     Dosage: 15.4286 MILLIGRAM DAILY;
     Route: 042
  18. ONDANSETRON [Concomitant]
     Active Substance: ONDANSETRON

REACTIONS (4)
  - Malaise [Not Recovered/Not Resolved]
  - Cardio-respiratory arrest [Not Recovered/Not Resolved]
  - Seizure [Not Recovered/Not Resolved]
  - Respiratory distress [Not Recovered/Not Resolved]
